FAERS Safety Report 21404735 (Version 1)
Quarter: 2022Q3

REPORT INFORMATION
  Report Type: Spontaneous
  Country: US (occurrence: None)
  Receive Date: 20220930
  Receipt Date: 20220930
  Transmission Date: 20221027
  Serious: No
  Sender: FDA-Public Use
  Company Number: None

PATIENT
  Age: 62 Year
  Sex: Female

DRUGS (1)
  1. REMDESIVIR [Suspect]
     Active Substance: REMDESIVIR
     Indication: COVID-19
     Dates: start: 20220608, end: 20220608

REACTIONS (3)
  - Respiratory depression [None]
  - Electrocardiogram QT prolonged [None]
  - Cardiac failure [None]

NARRATIVE: CASE EVENT DATE: 20220609
